FAERS Safety Report 15854196 (Version 1)
Quarter: 2019Q1

REPORT INFORMATION
  Report Type: Spontaneous
  Country: US (occurrence: US)
  Receive Date: 20190121
  Receipt Date: 20190121
  Transmission Date: 20190417
  Serious: Yes (Hospitalization, Disabling, Other)
  Sender: FDA-Public Use
  Company Number: None

PATIENT
  Age: 45 Year
  Sex: Female
  Weight: 97.65 kg

DRUGS (8)
  1. LAMOTRIGINE. [Suspect]
     Active Substance: LAMOTRIGINE
     Indication: AFFECTIVE DISORDER
     Dosage: ?          QUANTITY:30 TABLET(S);?
     Route: 048
  2. BABY ASPIRIN [Concomitant]
     Active Substance: ASPIRIN
  3. PROZAC [Concomitant]
     Active Substance: FLUOXETINE HYDROCHLORIDE
  4. SYNTHROID [Concomitant]
     Active Substance: LEVOTHYROXINE SODIUM
  5. FISH OIL [Concomitant]
     Active Substance: FISH OIL
  6. LAMICTAL [Concomitant]
     Active Substance: LAMOTRIGINE
  7. DIAZAPAM [Concomitant]
     Active Substance: DIAZEPAM
  8. VITAMIN D [Concomitant]
     Active Substance: CHOLECALCIFEROL

REACTIONS (14)
  - Withdrawal syndrome [None]
  - Anxiety [None]
  - Hypoaesthesia [None]
  - Ill-defined disorder [None]
  - Memory impairment [None]
  - Loss of personal independence in daily activities [None]
  - Pain [None]
  - Fibromyalgia [None]
  - Asthenia [None]
  - Balance disorder [None]
  - Bedridden [None]
  - Visual impairment [None]
  - Fatigue [None]
  - Therapy change [None]
